FAERS Safety Report 21668946 (Version 1)
Quarter: 2022Q4

REPORT INFORMATION
  Report Type: Report from Study
  Country: US (occurrence: US)
  Receive Date: 20221201
  Receipt Date: 20221201
  Transmission Date: 20230113
  Serious: Yes (Other)
  Sender: FDA-Public Use
  Company Number: US-ABBVIE-22K-163-4425523-00

PATIENT
  Age: 60 Year
  Sex: Male

DRUGS (2)
  1. HUMIRA [Suspect]
     Active Substance: ADALIMUMAB
     Indication: Psoriatic arthropathy
     Route: 058
     Dates: start: 20211117, end: 2022
  2. HUMIRA [Suspect]
     Active Substance: ADALIMUMAB
     Route: 058
     Dates: start: 2022

REACTIONS (6)
  - Knee arthroplasty [Unknown]
  - Chondromalacia [Unknown]
  - Effusion [Unknown]
  - Arthralgia [Unknown]
  - Synovial cyst [Unknown]
  - Meniscus injury [Unknown]

NARRATIVE: CASE EVENT DATE: 20220801
